FAERS Safety Report 19946384 (Version 3)
Quarter: 2021Q4

REPORT INFORMATION
  Report Type: Spontaneous
  Country: TW (occurrence: TW)
  Receive Date: 20211013
  Receipt Date: 20211227
  Transmission Date: 20220303
  Serious: Yes (Other)
  Sender: FDA-Public Use
  Company Number: US-SUN PHARMACEUTICAL INDUSTRIES LTD-2021R1-314232

PATIENT
  Age: 52 Year
  Sex: Female

DRUGS (5)
  1. LURASIDONE [Suspect]
     Active Substance: LURASIDONE
     Indication: Depressive symptom
     Dosage: 10 MILLIGRAM, DAILY
     Route: 065
  2. LURASIDONE [Suspect]
     Active Substance: LURASIDONE
     Dosage: 20 MILLIGRAM, DAILY
     Route: 065
  3. LURASIDONE [Suspect]
     Active Substance: LURASIDONE
     Dosage: 40 UNK
     Route: 065
  4. CARBAMAZEPINE [Concomitant]
     Active Substance: CARBAMAZEPINE
     Indication: Mood swings
     Dosage: 400 MILLIGRAM, DAILY
     Route: 065
  5. CARBAMAZEPINE [Concomitant]
     Active Substance: CARBAMAZEPINE
     Dosage: 200 UNK
     Route: 065

REACTIONS (2)
  - Hyponatraemia [Recovered/Resolved]
  - Polydipsia [Unknown]
